FAERS Safety Report 11374796 (Version 3)
Quarter: 2015Q3

REPORT INFORMATION
  Report Type: Spontaneous
  Country: US (occurrence: US)
  Receive Date: 20150813
  Receipt Date: 20150918
  Transmission Date: 20151125
  Serious: Yes (Other)
  Sender: FDA-Public Use
  Company Number: US-UCBSA-2015025188

PATIENT
  Age: 55 Year
  Sex: Male
  Weight: 109 kg

DRUGS (8)
  1. VIMPAT [Suspect]
     Active Substance: LACOSAMIDE
     Dosage: 200 MG, 2X/DAY (BID)
  2. KEPPRA [Suspect]
     Active Substance: LEVETIRACETAM
     Dosage: 500/1000 MG
     Dates: start: 2013
  3. KEPPRA [Suspect]
     Active Substance: LEVETIRACETAM
     Indication: SEIZURE
     Dosage: 1000 MG, 2X/DAY (BID)
     Dates: end: 2013
  4. VIMPAT [Suspect]
     Active Substance: LACOSAMIDE
     Indication: SEIZURE
     Dosage: 150 MG 2 TABLETS DAILY
  5. LAMICTAL [Concomitant]
     Active Substance: LAMOTRIGINE
     Indication: PRODUCT USED FOR UNKNOWN INDICATION
     Dosage: AS DIRECTED, 25 MG(42)-100 MG (7)
     Dates: start: 20140813
  6. DECADRON [Concomitant]
     Active Substance: DEXAMETHASONE
     Indication: PRODUCT USED FOR UNKNOWN INDICATION
     Dosage: UNK
  7. KEPPRA [Suspect]
     Active Substance: LEVETIRACETAM
     Dosage: 750 MG, 1 IN THE MORNING, 1.5 IN THE NIGHT
  8. DECADRON [Concomitant]
     Active Substance: DEXAMETHASONE
     Dosage: UNK
     Dates: start: 20150730

REACTIONS (17)
  - Seizure [Recovered/Resolved]
  - Pollakiuria [Unknown]
  - Eye pruritus [Unknown]
  - Asthenia [Unknown]
  - Sleep disorder [Unknown]
  - Pruritus [Unknown]
  - Fatigue [Unknown]
  - Weight decreased [Unknown]
  - Neoplasm [Unknown]
  - Anxiety [Unknown]
  - Hypoaesthesia [Unknown]
  - Depression [Recovered/Resolved]
  - Back pain [Unknown]
  - Tinnitus [Unknown]
  - Drug dose omission [Unknown]
  - Neck pain [Unknown]
  - Dry mouth [Unknown]

NARRATIVE: CASE EVENT DATE: 2013
